FAERS Safety Report 23752815 (Version 2)
Quarter: 2024Q2

REPORT INFORMATION
  Report Type: Report from Study
  Country: CA (occurrence: CA)
  Receive Date: 20240417
  Receipt Date: 20240612
  Transmission Date: 20240716
  Serious: Yes (Other)
  Sender: FDA-Public Use
  Company Number: CA-SANDOZ-SDZ2023CA066829

PATIENT
  Sex: Male

DRUGS (2)
  1. HYRIMOZ [Suspect]
     Active Substance: ADALIMUMAB-ADAZ
     Indication: Colitis ulcerative
     Dosage: 160 MG, Q2W
     Route: 058
     Dates: start: 20231208
  2. HYRIMOZ [Suspect]
     Active Substance: ADALIMUMAB-ADAZ
     Dosage: 40 MG, Q2W (PREFILLED PEN)
     Route: 058

REACTIONS (4)
  - Colitis ulcerative [Recovered/Resolved]
  - Symptom recurrence [Recovered/Resolved]
  - Injection site haemorrhage [Recovered/Resolved]
  - Product dose omission issue [Unknown]
